FAERS Safety Report 5672821-9 (Version None)
Quarter: 2008Q1

REPORT INFORMATION
  Report Type: 
  Country: None (occurrence: None)
  Receive Date: 20080317
  Receipt Date: 20080304
  Transmission Date: 20080703
  Serious: Yes (Hospitalization, Other)
  Sender: FDA-Public Use
  Company Number: 2007BI021718

PATIENT
  Age: 54 Year
  Sex: Female

DRUGS (9)
  1. AVONEX [Suspect]
     Indication: MULTIPLE SCLEROSIS
     Dosage: 30 UG;QW;IM
     Route: 030
     Dates: start: 19971001
  2. WELCHOL [Concomitant]
  3. AMANTADINE HCL [Concomitant]
  4. ISOSORBIDE DINITRATE [Concomitant]
  5. TOPROL-XL [Concomitant]
  6. LANTUS [Concomitant]
  7. ASPIRIN [Concomitant]
  8. SPIRIVA [Concomitant]
  9. ADVAIR DISKUS 100/50 [Concomitant]

REACTIONS (8)
  - AORTIC ANEURYSM [None]
  - BALANCE DISORDER [None]
  - DIALYSIS [None]
  - FATIGUE [None]
  - MYOCARDIAL INFARCTION [None]
  - NEUROPATHY PERIPHERAL [None]
  - RENAL ARTERY OCCLUSION [None]
  - RENAL FAILURE ACUTE [None]
